FAERS Safety Report 16255493 (Version 1)
Quarter: 2019Q2

REPORT INFORMATION
  Report Type: Spontaneous
  Country: US (occurrence: US)
  Receive Date: 20190429
  Receipt Date: 20190429
  Transmission Date: 20190711
  Serious: Yes (Hospitalization)
  Sender: FDA-Public Use
  Company Number: None

PATIENT
  Sex: Female

DRUGS (20)
  1. BUPROPN [Concomitant]
  2. BUSPIRONE [Concomitant]
     Active Substance: BUSPIRONE HYDROCHLORIDE
  3. FAMOTIDINE. [Concomitant]
     Active Substance: FAMOTIDINE
  4. OXYCODONE [Concomitant]
     Active Substance: OXYCODONE
  5. ENOXAPARIN [Concomitant]
     Active Substance: ENOXAPARIN
  6. FOLIC ACID. [Concomitant]
     Active Substance: FOLIC ACID
  7. LAMOTRIGINE. [Concomitant]
     Active Substance: LAMOTRIGINE
  8. MIRTAZAPINE. [Concomitant]
     Active Substance: MIRTAZAPINE
  9. NICOTINE. [Concomitant]
     Active Substance: NICOTINE
  10. COSENTYX [Suspect]
     Active Substance: SECUKINUMAB
     Indication: PSORIATIC ARTHROPATHY
     Dosage: ?          OTHER FREQUENCY:Q4W;?
     Route: 058
     Dates: start: 20180628
  11. GABAPENTIN. [Concomitant]
     Active Substance: GABAPENTIN
  12. MORPHINE SULF [Concomitant]
     Active Substance: MORPHINE SULFATE
  13. OLANZAPINE. [Concomitant]
     Active Substance: OLANZAPINE
  14. METHOTREXATE. [Concomitant]
     Active Substance: METHOTREXATE
  15. ONDANSETRON [Concomitant]
     Active Substance: ONDANSETRON
  16. PROAIR HFA [Concomitant]
     Active Substance: ALBUTEROL SULFATE
  17. CYCLOBENZAPR [Concomitant]
     Active Substance: CYCLOBENZAPRINE
  18. PRAZOSIN. [Concomitant]
     Active Substance: PRAZOSIN
  19. QUETIAPINE. [Concomitant]
     Active Substance: QUETIAPINE
  20. RELPAX [Concomitant]
     Active Substance: ELETRIPTAN HYDROBROMIDE

REACTIONS (2)
  - Compartment syndrome [None]
  - Therapy cessation [None]
